FAERS Safety Report 8353365-2 (Version None)
Quarter: 2012Q2

REPORT INFORMATION
  Report Type: 
  Country: None (occurrence: None)
  Receive Date: 20120511
  Receipt Date: 20120508
  Transmission Date: 20120825
  Serious: Yes (Hospitalization, Other)
  Sender: FDA-Public Use
  Company Number: PHHY2012CA031605

PATIENT
  Sex: Female
  Weight: 51.2 kg

DRUGS (6)
  1. VITAMIN D [Concomitant]
     Dosage: UNK UKN, UNK
     Dates: start: 20040101
  2. ZOLEDRONOC ACID [Suspect]
     Dosage: UNK UKN, UNK
     Route: 042
     Dates: start: 20110325
  3. CALCIUM [Concomitant]
     Dosage: UNK UKN, UNK
     Dates: start: 20040101
  4. ZOLEDRONOC ACID [Suspect]
     Indication: OSTEOPOROSIS
     Dosage: UNK UKN, UNK
     Route: 042
     Dates: start: 20090320
  5. ZOLEDRONOC ACID [Suspect]
     Dosage: UNK UKN, UNK
     Route: 042
     Dates: start: 20100325
  6. ZOLEDRONOC ACID [Suspect]
     Dosage: UNK UKN, UNK
     Route: 042
     Dates: start: 20120308

REACTIONS (3)
  - LUNG NEOPLASM MALIGNANT [None]
  - LUNG NEOPLASM [None]
  - BONE DENSITY DECREASED [None]
